FAERS Safety Report 10038848 (Version 1)
Quarter: 2014Q1

REPORT INFORMATION
  Report Type: Spontaneous
  Country: US (occurrence: None)
  Receive Date: 20140306
  Receipt Date: 20140306
  Transmission Date: 20141002
  Serious: Yes (Other)
  Sender: FDA-Public Use
  Company Number: 163-21880-12083127

PATIENT
  Age: 66 Year
  Sex: Male
  Weight: 83.01 kg

DRUGS (5)
  1. REVLIMID (LENALIDOMIDE) (5 MILLIGRAM, CAPSULES) [Suspect]
     Indication: PLASMA CELL MYELOMA
     Dosage: 5 MG, 21 IN 21 D, PO
     Route: 048
     Dates: start: 201203
  2. ACYCLOVIR (ACICLOVIR) (CAPSULES) [Concomitant]
  3. NITROGLYCERINE (GLYCERYL TRINITRATE) (UNKNOWN) [Concomitant]
  4. BAYCOL (CERIVASTATIN SODIUM) (UNKNOWN) [Concomitant]
  5. LIPITOR (ATORVASTATIN) (UNKNOWN) [Concomitant]

REACTIONS (3)
  - Neutrophil count decreased [None]
  - White blood cell count decreased [None]
  - Abdominal pain upper [None]
